FAERS Safety Report 8501783 (Version 5)
Quarter: 2012Q4

REPORT INFORMATION
  Report Type: 
  Country: JP (occurrence: JP)
  Receive Date: 20120410
  Receipt Date: 20120903
  Transmission Date: 20130627
  Serious: Yes (Hospitalization, Other)
  Sender: FDA-Public Use
  Company Number: JP-PFIZER INC-2012084424

PATIENT
  Age: 50 Year
  Sex: Female
  Weight: 51 kg

DRUGS (3)
  1. LYRICA [Suspect]
     Indication: BACK PAIN
     Dosage: UNK
     Route: 048
     Dates: end: 20120329
  2. LEVOTOMIN [Suspect]
     Dosage: UNK
     Route: 048
     Dates: end: 20120329
  3. ETODOLAC [Suspect]
     Dosage: UNK
     Route: 048
     Dates: end: 20120329

REACTIONS (8)
  - Intentional overdose [Recovering/Resolving]
  - Toxicity to various agents [Recovering/Resolving]
  - Suicide attempt [Recovering/Resolving]
  - Altered state of consciousness [Recovering/Resolving]
  - Delirium [Recovered/Resolved]
  - Hallucinations, mixed [Recovered/Resolved]
  - Emotional disorder [Recovered/Resolved]
  - Left ventricular dysfunction [Recovering/Resolving]
